FAERS Safety Report 20086073 (Version 8)
Quarter: 2025Q1

REPORT INFORMATION
  Report Type: Report from Study
  Country: US (occurrence: US)
  Receive Date: 20211118
  Receipt Date: 20250301
  Transmission Date: 20250409
  Serious: Yes (Other)
  Sender: TAKEDA
  Company Number: US-TAKEDA-US202022426

PATIENT
  Age: 78 Year
  Sex: Female

DRUGS (4)
  1. HUMAN IMMUNOGLOBULIN G [Suspect]
     Active Substance: HUMAN IMMUNOGLOBULIN G
     Indication: Immunodeficiency common variable
  2. HUMAN IMMUNOGLOBULIN G [Suspect]
     Active Substance: HUMAN IMMUNOGLOBULIN G
     Indication: Primary immunodeficiency syndrome
     Dosage: UNK, 4/WEEK
  3. HUMAN IMMUNOGLOBULIN G [Suspect]
     Active Substance: HUMAN IMMUNOGLOBULIN G
     Dosage: 15 GRAM, 1/WEEK
  4. HUMAN IMMUNOGLOBULIN G [Suspect]
     Active Substance: HUMAN IMMUNOGLOBULIN G

REACTIONS (15)
  - Pneumonia [Unknown]
  - Diverticulitis [Unknown]
  - Injection site swelling [Unknown]
  - Urinary tract infection [Unknown]
  - Skin wound [Unknown]
  - Aphthous ulcer [Unknown]
  - Asthenia [Unknown]
  - Infusion site pain [Unknown]
  - Skin disorder [Unknown]
  - COVID-19 [Recovered/Resolved]
  - Influenza [Recovering/Resolving]
  - Rash pruritic [Unknown]
  - Contusion [Unknown]
  - Infusion site swelling [Unknown]
  - Fatigue [Not Recovered/Not Resolved]

NARRATIVE: CASE EVENT DATE: 20220104
